FAERS Safety Report 14799105 (Version 1)
Quarter: 2018Q2

REPORT INFORMATION
  Report Type: Spontaneous
  Country: DE (occurrence: DE)
  Receive Date: 20180424
  Receipt Date: 20180424
  Transmission Date: 20180711
  Serious: Yes (Hospitalization)
  Sender: FDA-Public Use
  Company Number: PHHY2017DE180931

PATIENT
  Age: 54 Year
  Sex: Female

DRUGS (14)
  1. MELPERONE [Suspect]
     Active Substance: MELPERONE
     Indication: MAJOR DEPRESSION
     Dosage: 100 MG (50 TO 100 MG), UNK
     Route: 065
  2. BUPROPION. [Suspect]
     Active Substance: BUPROPION
     Dosage: 150 TO 300 MG
     Route: 065
  3. RAMIPRIL. [Concomitant]
     Active Substance: RAMIPRIL
     Indication: HYPERTENSION
     Dosage: 5 MG, UNK
     Route: 065
  4. DOXEPIN [Suspect]
     Active Substance: DOXEPIN
     Dosage: ONCE OR TWICE A WEEK
     Route: 065
     Dates: start: 2015, end: 2016
  5. SERTRALINE [Suspect]
     Active Substance: SERTRALINE HYDROCHLORIDE
     Dosage: 100 MG, UNK
     Route: 065
  6. BUPROPION. [Suspect]
     Active Substance: BUPROPION
     Indication: MAJOR DEPRESSION
     Dosage: 300 MG (150 TO 300 MG), UNK
     Route: 065
  7. VENLAFAXINE [Suspect]
     Active Substance: VENLAFAXINE HYDROCHLORIDE
     Indication: MAJOR DEPRESSION
     Dosage: 150-300 MG, UNK
     Route: 065
  8. DOXEPIN [Suspect]
     Active Substance: DOXEPIN
     Indication: MAJOR DEPRESSION
     Dosage: UNK, ONCE OR TWICE A WEEK
     Route: 065
  9. DOXEPIN [Suspect]
     Active Substance: DOXEPIN
     Dosage: UNK
  10. LITHIUM. [Concomitant]
     Active Substance: LITHIUM
     Indication: MAJOR DEPRESSION
     Route: 065
  11. DOXEPIN [Suspect]
     Active Substance: DOXEPIN
     Dosage: ONCE OR TWICE A WEEK
     Dates: start: 2006, end: 2016
  12. MELPERONE [Suspect]
     Active Substance: MELPERONE
     Dosage: 50 TO 100 MG
     Route: 065
  13. SERTRALINE [Suspect]
     Active Substance: SERTRALINE HYDROCHLORIDE
     Indication: MAJOR DEPRESSION
     Dosage: 150 MG, UNK
     Route: 065
  14. SERTRALINE [Suspect]
     Active Substance: SERTRALINE HYDROCHLORIDE
     Route: 065

REACTIONS (11)
  - Body mass index increased [Unknown]
  - Abnormal behaviour [Unknown]
  - Sleep apnoea syndrome [Unknown]
  - Major depression [Unknown]
  - Sleep-related eating disorder [Recovering/Resolving]
  - Limb discomfort [Unknown]
  - Weight increased [Recovering/Resolving]
  - Sleep-related eating disorder [Recovered/Resolved]
  - Condition aggravated [Recovering/Resolving]
  - Insomnia [Unknown]
  - Restless legs syndrome [Unknown]

NARRATIVE: CASE EVENT DATE: 201606
